FAERS Safety Report 9384344 (Version 1)
Quarter: 2013Q3

REPORT INFORMATION
  Report Type: Report from Study
  Country: BR (occurrence: BR)
  Receive Date: 20130705
  Receipt Date: 20130705
  Transmission Date: 20140515
  Serious: Yes (Life-Threatening, Hospitalization)
  Sender: FDA-Public Use
  Company Number: PHHY2013BR070080

PATIENT
  Sex: Female

DRUGS (3)
  1. FORASEQ [Suspect]
     Indication: ASTHMA
     Dosage: 1 DF, BID
  2. ALENIA [Suspect]
     Indication: ASTHMA
     Dosage: UNK
     Dates: start: 2010
  3. OMEPRAZOLE [Concomitant]
     Indication: NAUSEA
     Dosage: 1 DF, PRN

REACTIONS (4)
  - Apparent death [Unknown]
  - Respiratory arrest [Recovered/Resolved]
  - Asthma [Recovered/Resolved]
  - Swelling [Not Recovered/Not Resolved]
